FAERS Safety Report 10157907 (Version 4)
Quarter: 2014Q2

REPORT INFORMATION
  Report Type: Spontaneous
  Country: JP (occurrence: JP)
  Receive Date: 20140507
  Receipt Date: 20140617
  Transmission Date: 20141212
  Serious: Yes (Death, Hospitalization, Other)
  Sender: FDA-Public Use
  Company Number: JP-ELI_LILLY_AND_COMPANY-JP201404009572

PATIENT
  Age: 64 Year
  Sex: Male
  Weight: 42 kg

DRUGS (8)
  1. GEMZAR [Suspect]
     Indication: LUNG ADENOCARCINOMA STAGE IV
     Dosage: 1600 MG, EACH IN DAY 1, 8 AND 15
     Route: 042
     Dates: start: 20140117, end: 20140213
  2. GEMZAR [Suspect]
     Dosage: 1600 MG, EACH IN DAY 1, 8 AND 15
     Route: 042
     Dates: start: 20140225, end: 20140324
  3. GEMZAR [Suspect]
     Dosage: 1600 MG, EACH IN DAY 1 AND 8
     Route: 042
     Dates: start: 20140401, end: 20140401
  4. MUCOSOLVAN [Concomitant]
     Indication: PRODUCTIVE COUGH
     Dosage: 3 DF, UNK
     Route: 048
     Dates: start: 20130809, end: 20140526
  5. MUCODYNE [Concomitant]
     Indication: PRODUCTIVE COUGH
     Dosage: 3 DF, QD
     Route: 048
     Dates: start: 20140110, end: 20140526
  6. XYZAL [Concomitant]
     Indication: RHINITIS ALLERGIC
     Dosage: 1 DF, UNK
     Route: 048
     Dates: start: 20140117, end: 20140526
  7. OXYCONTIN [Concomitant]
     Indication: COUGH
     Dosage: 10 MG, QD
     Route: 048
     Dates: start: 20140117, end: 20140522
  8. BROCIN-CODEINE [Concomitant]
     Indication: COUGH
     Dosage: UNK, AS-NEEDED USE
     Route: 048
     Dates: start: 20131108, end: 20140526

REACTIONS (2)
  - Lung adenocarcinoma stage IV [Fatal]
  - Pneumonitis [Fatal]
